FAERS Safety Report 4358620-9 (Version None)
Quarter: 2004Q2

REPORT INFORMATION
  Report Type: 
  Country: None (occurrence: None)
  Receive Date: 20040512
  Receipt Date: 20040512
  Transmission Date: 20050107
  Serious: Yes (Hospitalization)
  Sender: FDA-Public Use
  Company Number: None

PATIENT
  Age: 70 Year
  Sex: Female
  Weight: 81 kg

DRUGS (14)
  1. HEPARIN [Suspect]
     Dosage: 8ML/HOUR
  2. ADVAIR DISKUS 100/50 [Concomitant]
  3. KLONOPIN [Concomitant]
  4. PREDNISONE [Concomitant]
  5. ASPIRIN [Concomitant]
  6. LEXAPRO [Concomitant]
  7. PHENYTOIN [Concomitant]
  8. MOTRIN [Concomitant]
  9. REMION [Concomitant]
  10. NEURONTIN [Concomitant]
  11. TENORMIN [Concomitant]
  12. LASIX [Concomitant]
  13. XOPEX [Concomitant]
  14. DIONE [Concomitant]

REACTIONS (1)
  - RETROPERITONEAL HAEMORRHAGE [None]
